FAERS Safety Report 8226349-2 (Version None)
Quarter: 2012Q1

REPORT INFORMATION
  Report Type: 
  Country: None (occurrence: None)
  Receive Date: 20120321
  Receipt Date: 20111118
  Transmission Date: 20120608
  Serious: Yes (Hospitalization, Other)
  Sender: FDA-Public Use
  Company Number: FR-GILEAD-2007-0013990

PATIENT
  Sex: Male

DRUGS (5)
  1. SUSTIVA [Suspect]
     Indication: HIV INFECTION
     Dosage: 600 MG, QD
     Route: 048
     Dates: start: 20061123
  2. EMTRICITABINE AND TENOFOVIR DISOPROXIL FUMARATE [Suspect]
     Indication: HIV INFECTION
     Dosage: 1 MG, QD
     Route: 048
     Dates: start: 20061123, end: 20070306
  3. FUZEON [Suspect]
     Indication: HIV INFECTION
     Dosage: 90 MG, BID
     Route: 058
     Dates: start: 20061123, end: 20070306
  4. BACTRIM [Suspect]
     Indication: PROPHYLAXIS
     Dosage: UNK UNK, QD
     Route: 048
     Dates: start: 20061103, end: 20070511
  5. ASPIRIN [Concomitant]
     Dosage: UNK

REACTIONS (4)
  - SURGICAL FAILURE [None]
  - POLYNEUROPATHY [None]
  - NEUTROPENIA [None]
  - ARTERIAL STENOSIS [None]
